FAERS Safety Report 9814703 (Version 2)
Quarter: 2014Q1

REPORT INFORMATION
  Report Type: Spontaneous
  Country: US (occurrence: US)
  Receive Date: 20140113
  Receipt Date: 20140113
  Transmission Date: 20141002
  Serious: Yes (Hospitalization)
  Sender: FDA-Public Use
  Company Number: US-SANOFI-AVENTIS-2013SA002728

PATIENT
  Age: 70 Year
  Sex: Female
  Weight: 168.8 kg

DRUGS (12)
  1. TAXOTERE [Suspect]
     Indication: BREAST NEOPLASM
     Dosage: FORM-VIAL
     Route: 042
     Dates: start: 20120912
  2. CARBOPLATIN [Suspect]
     Indication: BREAST NEOPLASM
     Route: 042
     Dates: start: 20120912
  3. BLINDED THERAPY [Concomitant]
     Indication: BREAST NEOPLASM
     Dosage: FORM-INFUSION
     Route: 042
     Dates: start: 20120912
  4. BLINDED THERAPY [Concomitant]
     Indication: BREAST NEOPLASM
     Dosage: FORM-INFUSION
     Route: 042
     Dates: start: 20120912
  5. ASPIRIN [Concomitant]
     Dates: start: 2008
  6. POTASSIUM CHLORIDE [Concomitant]
     Dates: start: 20121109
  7. PROTONIX [Concomitant]
     Route: 048
     Dates: start: 20121011
  8. MAGNESIUM OXIDE [Concomitant]
     Route: 048
     Dates: start: 20121119
  9. LASIX [Concomitant]
     Route: 048
     Dates: start: 20121227, end: 20130106
  10. NEULASTA [Concomitant]
     Dosage: DAY 2
     Route: 058
     Dates: start: 20120913
  11. HYDROCHLOROTHIAZIDE/LOSARTAN POTASSIUM [Concomitant]
     Dosage: DOSE: 100 MG/ 25 MG (DAILY)
     Route: 048
     Dates: start: 2010, end: 20130107
  12. NORMAL SALINE [Concomitant]
     Route: 042
     Dates: start: 20121221, end: 20121221

REACTIONS (4)
  - Diarrhoea [Recovering/Resolving]
  - Dehydration [Recovered/Resolved]
  - Neutropenia [Recovering/Resolving]
  - Urinary tract infection [Recovering/Resolving]
